FAERS Safety Report 9199037 (Version 2)
Quarter: 2013Q2

REPORT INFORMATION
  Report Type: Spontaneous
  Country: US (occurrence: US)
  Receive Date: 20130329
  Receipt Date: 20130422
  Transmission Date: 20140414
  Serious: Yes (Other)
  Sender: FDA-Public Use
  Company Number: US-PFIZER INC-2013097617

PATIENT
  Age: 65 Year
  Sex: Female
  Weight: 77 kg

DRUGS (4)
  1. ESTRING [Suspect]
     Indication: VULVOVAGINAL DRYNESS
     Dosage: UNK
     Route: 067
     Dates: start: 20130322, end: 201303
  2. DEXEDRINE [Concomitant]
     Indication: DEPRESSION
     Dosage: UNK, DAILY
  3. ATIVAN [Concomitant]
     Dosage: 2 MG, UNK
  4. TYLENOL [Concomitant]
     Indication: ARTHRITIS
     Dosage: 1300 MG, 2X/DAY

REACTIONS (7)
  - Toxic shock syndrome [Recovering/Resolving]
  - Rash [Recovering/Resolving]
  - Diarrhoea [Recovering/Resolving]
  - Dizziness [Recovering/Resolving]
  - Nausea [Recovering/Resolving]
  - Vomiting [Recovering/Resolving]
  - Dyspnoea [Unknown]
